FAERS Safety Report 5657062-3 (Version None)
Quarter: 2008Q1

REPORT INFORMATION
  Report Type: 
  Country: None (occurrence: None)
  Receive Date: 20080310
  Receipt Date: 20080229
  Transmission Date: 20080703
  Serious: Yes (Death)
  Sender: FDA-Public Use
  Company Number: LB-AVENTIS-200810995EU

PATIENT
  Sex: Female

DRUGS (2)
  1. LOVENOX [Suspect]
     Route: 040
  2. PLAVIX [Concomitant]
     Dosage: DOSE: UNK
     Route: 048

REACTIONS (2)
  - CORONARY ARTERY EMBOLISM [None]
  - DRUG INEFFECTIVE [None]
